FAERS Safety Report 4597555-3 (Version None)
Quarter: 2005Q1

REPORT INFORMATION
  Report Type: 
  Country: None (occurrence: None)
  Receive Date: 20050228
  Receipt Date: 20050228
  Transmission Date: 20050727
  Serious: No
  Sender: FDA-Public Use
  Company Number: None

PATIENT
  Age: 27 Year
  Sex: Female
  Weight: 68.4932 kg

DRUGS (3)
  1. COMPAZINE [Suspect]
     Indication: NAUSEA
     Dosage: Q  6 HRS  PRN
     Dates: start: 20050223
  2. LEXAPRO [Concomitant]
  3. ORTHO EVRA [Concomitant]

REACTIONS (3)
  - BRUXISM [None]
  - DYSARTHRIA [None]
  - DYSTONIA [None]
